FAERS Safety Report 7150000-6 (Version None)
Quarter: 2010Q4

REPORT INFORMATION
  Report Type: 
  Country: None (occurrence: None)
  Receive Date: 20101210
  Receipt Date: 20101203
  Transmission Date: 20110411
  Serious: Yes (Other)
  Sender: FDA-Public Use
  Company Number: GR-SHIRE-SPV1-2010-02085

PATIENT
  Age: 38 Year
  Sex: Male

DRUGS (3)
  1. FOSRENOL [Suspect]
     Indication: HYPERPHOSPHATAEMIA
     Dosage: UNK UNK, UNKNOWN
     Route: 048
     Dates: end: 20100906
  2. FERROVIN [Concomitant]
     Indication: PRODUCT USED FOR UNKNOWN INDICATION
     Dosage: UNK, UNKNOWN
     Route: 065
  3. RENVELA [Concomitant]
     Indication: HYPERPHOSPHATAEMIA

REACTIONS (4)
  - GASTROINTESTINAL DISORDER [None]
  - LIVER DISORDER [None]
  - RENAL CYST [None]
  - WEIGHT DECREASED [None]
